FAERS Safety Report 14921938 (Version 1)
Quarter: 2018Q2

REPORT INFORMATION
  Report Type: Other
  Country: DE (occurrence: DE)
  Receive Date: 20180522
  Receipt Date: 20180522
  Transmission Date: 20180711
  Serious: Yes (Other)
  Sender: FDA-Public Use
  Company Number: DE-LUPIN PHARMACEUTICALS INC.-2017-02986

PATIENT

DRUGS (7)
  1. SOLIAN [Suspect]
     Active Substance: AMISULPRIDE
     Dosage: 1000 MG, QD
     Route: 048
     Dates: start: 20160921, end: 20161004
  2. SOLIAN [Suspect]
     Active Substance: AMISULPRIDE
     Dosage: 1200 MG, QD
     Route: 048
     Dates: start: 20161005, end: 20161013
  3. QUETIAPINE. [Suspect]
     Active Substance: QUETIAPINE
     Dosage: 800 MG, QD
     Route: 048
     Dates: start: 20161013
  4. QUETIAPINE. [Suspect]
     Active Substance: QUETIAPINE
     Indication: PRODUCT USED FOR UNKNOWN INDICATION
     Dosage: 200-800 MG/TAG
     Route: 048
     Dates: start: 20160902, end: 20161012
  5. SOLIAN [Suspect]
     Active Substance: AMISULPRIDE
     Indication: PRODUCT USED FOR UNKNOWN INDICATION
     Dosage: 800 MG, QD
     Route: 048
     Dates: start: 20160826, end: 20160920
  6. SOLIAN [Suspect]
     Active Substance: AMISULPRIDE
     Dosage: 1000 MG, QD
     Route: 048
     Dates: start: 20161014
  7. DIAZEPAM. [Concomitant]
     Active Substance: DIAZEPAM
     Indication: PRODUCT USED FOR UNKNOWN INDICATION
     Dosage: 20 MG, QD
     Route: 048
     Dates: start: 20160812

REACTIONS (3)
  - Blood triglycerides increased [Unknown]
  - Blood cholesterol increased [Unknown]
  - Weight increased [Recovering/Resolving]

NARRATIVE: CASE EVENT DATE: 20160908
